FAERS Safety Report 9468101 (Version 2)
Quarter: 2013Q3

REPORT INFORMATION
  Report Type: Spontaneous
  Country: IN (occurrence: IN)
  Receive Date: 20130821
  Receipt Date: 20130822
  Transmission Date: 20140515
  Serious: Yes (Other)
  Sender: FDA-Public Use
  Company Number: IN-PFIZER INC-2013238961

PATIENT
  Age: 28 Year
  Sex: Female

DRUGS (7)
  1. PIPERACILLIN/TAZOBACTAM [Suspect]
     Indication: ESCHERICHIA BACTERAEMIA
     Dosage: UNK
  2. AMPICILLIN [Suspect]
     Indication: ENTEROCOCCAL INFECTION
     Dosage: UNK
  3. ETHAMBUTOL [Suspect]
     Indication: TUBERCULOSIS
     Dosage: UNK
  4. ISONIAZID [Suspect]
     Indication: TUBERCULOSIS
     Dosage: UNK
  5. RIFAMPICIN [Suspect]
     Indication: TUBERCULOSIS
     Dosage: UNK
  6. PYRAZINAMIDE [Suspect]
     Indication: TUBERCULOSIS
     Dosage: UNK
  7. PYRIDOXINE [Suspect]
     Indication: TUBERCULOSIS
     Dosage: UNK

REACTIONS (2)
  - Oligohydramnios [Unknown]
  - Renal impairment [Recovered/Resolved]
